FAERS Safety Report 18252118 (Version 1)
Quarter: 2020Q3

REPORT INFORMATION
  Report Type: Spontaneous
  Country: US (occurrence: US)
  Receive Date: 20200910
  Receipt Date: 20200910
  Transmission Date: 20201103
  Serious: No
  Sender: FDA-Public Use
  Company Number: US-FARMAPROD-202003-0255

PATIENT
  Age: 65 Year
  Sex: Female

DRUGS (4)
  1. OXERVATE [Suspect]
     Active Substance: CENEGERMIN-BKBJ
     Indication: ULCERATIVE KERATITIS
  2. OFLOXACIN. [Concomitant]
     Active Substance: OFLOXACIN
     Indication: ULCERATIVE KERATITIS
     Dates: start: 20200131
  3. OXERVATE [Suspect]
     Active Substance: CENEGERMIN-BKBJ
     Indication: NEUROTROPHIC KERATOPATHY
     Route: 047
     Dates: start: 20200302, end: 20200304
  4. KENALOG [Concomitant]
     Active Substance: TRIAMCINOLONE ACETONIDE
     Indication: NEUROTROPHIC KERATOPATHY
     Dosage: 0.5 CC
     Dates: start: 20200131, end: 20200131

REACTIONS (2)
  - Ocular discomfort [Recovered/Resolved]
  - Eye pain [Unknown]

NARRATIVE: CASE EVENT DATE: 20200302
